FAERS Safety Report 9413914 (Version 1)
Quarter: 2013Q3

REPORT INFORMATION
  Report Type: Spontaneous
  Country: US (occurrence: US)
  Receive Date: 20130723
  Receipt Date: 20130723
  Transmission Date: 20140515
  Serious: Yes (Other)
  Sender: FDA-Public Use
  Company Number: US-SANOFI-AVENTIS-2013SA072940

PATIENT
  Age: 53 Year
  Sex: Female

DRUGS (4)
  1. ENOXAPARIN SODIUM - WINTHROP [Suspect]
     Indication: PULMONARY EMBOLISM
     Dosage: ABOUT 2007
     Route: 065
  2. JANUVIA [Concomitant]
  3. AMARYL [Concomitant]
  4. INSULIN [Concomitant]
     Dosage: DOSE:14 UNIT(S)
     Route: 065

REACTIONS (10)
  - Hypersomnia [Not Recovered/Not Resolved]
  - Feeling abnormal [Not Recovered/Not Resolved]
  - Hormone level abnormal [Not Recovered/Not Resolved]
  - Sex hormone binding globulin decreased [Not Recovered/Not Resolved]
  - Dysphonia [Not Recovered/Not Resolved]
  - Breast discharge [Not Recovered/Not Resolved]
  - Hormone level abnormal [Not Recovered/Not Resolved]
  - Blood glucose increased [Not Recovered/Not Resolved]
  - Retinal disorder [Not Recovered/Not Resolved]
  - Coagulation factor X level increased [Not Recovered/Not Resolved]
